FAERS Safety Report 8150378-0 (Version None)
Quarter: 2012Q1

REPORT INFORMATION
  Report Type: 
  Country: None (occurrence: None)
  Receive Date: 20120220
  Receipt Date: 20120214
  Transmission Date: 20120608
  Serious: Yes (Other)
  Sender: FDA-Public Use
  Company Number: VE-PFIZER INC-2012040903

PATIENT
  Sex: Female

DRUGS (1)
  1. VARENICLINE TARTRATE [Suspect]
     Dosage: 1 MG, UNK

REACTIONS (4)
  - SWELLING FACE [None]
  - PRURITUS GENERALISED [None]
  - RASH GENERALISED [None]
  - SWELLING [None]
